FAERS Safety Report 4558103-7 (Version None)
Quarter: 2005Q1

REPORT INFORMATION
  Report Type: 
  Country: None (occurrence: None)
  Receive Date: 20050121
  Receipt Date: 20041110
  Transmission Date: 20050727
  Serious: No
  Sender: FDA-Public Use
  Company Number: US-BRISTOL-MYERS SQUIBB COMPANY-12762043

PATIENT
  Age: 40 Year
  Sex: Female

DRUGS (3)
  1. SERZONE [Suspect]
     Indication: DEPRESSION
     Route: 048
     Dates: start: 20041001
  2. LEXAPRO [Suspect]
     Indication: MAJOR DEPRESSION
     Dosage: 11-OCT-04 TO 12-OCT-04 10MG/D THEN OCT-04 - 25-OCT-04 5 MG/D. 26-OCT 2.5MG/D ONCE
     Route: 048
     Dates: start: 20041011, end: 20041026
  3. WELLBUTRIN [Concomitant]

REACTIONS (3)
  - AGITATION [None]
  - CONFUSIONAL STATE [None]
  - INSOMNIA [None]
